FAERS Safety Report 24847792 (Version 1)
Quarter: 2025Q1

REPORT INFORMATION
  Report Type: Spontaneous
  Country: IT (occurrence: IT)
  Receive Date: 20250116
  Receipt Date: 20250116
  Transmission Date: 20250408
  Serious: Yes (Hospitalization, Other)
  Sender: SAMSUNG BIOEPIS
  Company Number: None

PATIENT
  Age: 55 Year
  Sex: Female

DRUGS (1)
  1. ADALIMUMAB [Suspect]
     Active Substance: ADALIMUMAB
     Indication: Colitis ulcerative
     Dosage: 1 FL SUBCUTANEOUSLY EVERY 7 DAYS (INTENSIFIED DOSAGE COMPARED TO THE STANDARD MAINTENANCE OF 1 FL EV
     Route: 058
     Dates: start: 20230315, end: 202407

REACTIONS (3)
  - Pneumonia mycoplasmal [Recovering/Resolving]
  - Acute respiratory failure [Unknown]
  - Epstein-Barr virus infection [Unknown]

NARRATIVE: CASE EVENT DATE: 20240728
